FAERS Safety Report 8375841-9 (Version None)
Quarter: 2012Q2

REPORT INFORMATION
  Report Type: 
  Country: None (occurrence: None)
  Receive Date: 20120522
  Receipt Date: 20120516
  Transmission Date: 20120825
  Serious: Yes (Hospitalization, Other)
  Sender: FDA-Public Use
  Company Number: US-CELGENEUS-163-21880-12041462

PATIENT
  Sex: Female

DRUGS (18)
  1. DECADRON [Concomitant]
     Dosage: 10 MILLIGRAM
     Route: 048
  2. SITAGLIPTIN PHOSPHATE [Concomitant]
     Dosage: 100 MILLIGRAM
     Route: 048
  3. ALLOPURINOL [Concomitant]
     Dosage: 100 MILLIGRAM
     Route: 048
  4. LISINOPRIL [Concomitant]
     Dosage: 30 MILLIGRAM
     Route: 048
  5. ISOSORBIDE MONONITRATE [Concomitant]
     Dosage: 60 MILLIGRAM
     Route: 065
  6. VALACYCLOVIR HYDROCHLORIDE [Concomitant]
     Indication: PROPHYLAXIS
     Dosage: 500 MILLIGRAM
     Route: 048
  7. VELCADE [Concomitant]
     Dosage: 1.3 MILLIGRAM/SQ. METER
     Route: 058
  8. METOPROLOL SUCCINATE [Concomitant]
     Dosage: 100 MILLIGRAM
     Route: 048
  9. COLESEVELAM HYDROCHLORIDE [Concomitant]
     Dosage: 625 MILLIGRAM
     Route: 048
  10. SENNOSIDE DOCUSATE SODIUM [Concomitant]
     Route: 048
  11. LEVOTHYROXINE SODIUM [Concomitant]
     Dosage: 100 MICROGRAM
     Route: 048
  12. ASPIRIN [Concomitant]
     Dosage: 81 MILLIGRAM
     Route: 048
  13. PRAVASTATIN [Concomitant]
     Dosage: 80 MILLIGRAM
     Route: 048
  14. FUROSEMIDE [Concomitant]
     Dosage: 20 MILLIGRAM
     Route: 048
  15. OMEPRAZOLE [Concomitant]
     Dosage: 20 MILLIGRAM
     Route: 048
  16. REVLIMID [Suspect]
     Indication: MULTIPLE MYELOMA
     Dosage: 10 MILLIGRAM
     Route: 048
     Dates: start: 20120402, end: 20120418
  17. VELCADE [Concomitant]
     Dosage: 1.3 MICROGRAM/SQ. METER
     Route: 058
  18. NIACIN [Concomitant]
     Dosage: 500 MILLIGRAM
     Route: 048

REACTIONS (3)
  - CONSTIPATION [None]
  - FAECALOMA [None]
  - RECTAL HAEMORRHAGE [None]
